FAERS Safety Report 5224664-8 (Version None)
Quarter: 2007Q1

REPORT INFORMATION
  Report Type: 
  Country: None (occurrence: None)
  Receive Date: 20070126
  Receipt Date: 20070117
  Transmission Date: 20070707
  Serious: Yes (Other)
  Sender: FDA-Public Use
  Company Number: 2007JP000140

PATIENT
  Age: 84 Year
  Sex: Male

DRUGS (3)
  1. VESICARE [Suspect]
     Indication: HYPERTONIC BLADDER
     Dosage: 5 MG, UID/QD, ORAL
     Route: 048
     Dates: start: 20061012, end: 20070104
  2. PROSTAT (CHLORMADINONE ACETATE) PER ORAL NOS, 25MG [Suspect]
     Indication: PROSTATE CANCER
     Dosage: 25 MG, UID/QD, ORAL
     Route: 048
     Dates: start: 20060217, end: 20070104
  3. ALLEGRA [Concomitant]

REACTIONS (1)
  - DERMATITIS EXFOLIATIVE [None]
